FAERS Safety Report 5151132-4 (Version None)
Quarter: 2006Q4

REPORT INFORMATION
  Report Type: 
  Country: None (occurrence: None)
  Receive Date: 20061114
  Receipt Date: 20061114
  Transmission Date: 20070319
  Serious: Yes (Other)
  Sender: FDA-Public Use
  Company Number: None

PATIENT
  Sex: Female
  Weight: 99.7913 kg

DRUGS (1)
  1. ACETAMINOPHEN [Suspect]
     Indication: BACK PAIN
     Dosage: 1000MB EVERY 4 HOURS PO
     Route: 048
     Dates: start: 20061005, end: 20061017

REACTIONS (3)
  - ABDOMINAL DISCOMFORT [None]
  - ABDOMINAL PAIN [None]
  - PHARMACEUTICAL PRODUCT COMPLAINT [None]
